FAERS Safety Report 7394010 (Version 4)
Quarter: 2013Q4

REPORT INFORMATION
  Report Type: Spontaneous
  Country: US (occurrence: US)
  Receive Date: 20100520
  Receipt Date: 20131101
  Transmission Date: 20140711
  Serious: Yes (Hospitalization, Other)
  Sender: FDA-Public Use
  Company Number: US-BAYER-201022211NA

PATIENT
  Age: 21 Year
  Sex: Female
  Weight: 104.31 kg

DRUGS (15)
  1. YASMIN [Suspect]
     Indication: CONTRACEPTION
     Dosage: 1 TAB/DAY
     Route: 048
     Dates: start: 200410, end: 200804
  2. YASMIN [Suspect]
     Indication: ACNE
  3. OCELLA [Suspect]
     Dosage: UNK UNK, QD
     Route: 048
     Dates: start: 200805, end: 200912
  4. ACCUTANE [Concomitant]
     Indication: ACNE
     Dosage: 40 MG, QD
     Route: 048
     Dates: start: 20070803
  5. AMITRIPTYLINE [Concomitant]
     Indication: FIBROMYALGIA
     Dosage: UNK
     Route: 048
     Dates: start: 20081216
  6. NSAID^S [Concomitant]
     Dosage: UNK
     Dates: start: 200610
  7. CITALOPRAM [Concomitant]
     Dosage: UNK
     Route: 048
     Dates: start: 20070109
  8. FLUOXETINE [Concomitant]
     Dosage: UNK
     Route: 048
     Dates: start: 20070803
  9. CLARAVIS [Concomitant]
     Dosage: UNK
     Route: 048
     Dates: start: 20071204
  10. AZITHROMYCIN [Concomitant]
     Dosage: UNK
     Route: 048
     Dates: start: 20090223
  11. CALTRATE + D [CALCIUM,VITAMIN D NOS] [Concomitant]
     Dosage: 600 MG, QD
     Route: 048
     Dates: start: 20090727
  12. CALTRATE + D [CALCIUM,VITAMIN D NOS] [Concomitant]
     Dosage: 200 U, QD
     Route: 048
     Dates: start: 20090727
  13. PROZAC [Concomitant]
     Dosage: 30 MG, HS
     Dates: start: 20090727, end: 20090917
  14. PROZAC [Concomitant]
     Dosage: 20 MG, QD
  15. IRON [IRON] [Concomitant]
     Dosage: 325 MG, TID
     Route: 048
     Dates: start: 20090807

REACTIONS (4)
  - Cholecystitis chronic [None]
  - Biliary dyskinesia [None]
  - Cholesterosis [None]
  - Cholecystitis chronic [None]
